FAERS Safety Report 12871184 (Version 1)
Quarter: 2016Q4

REPORT INFORMATION
  Report Type: Spontaneous
  Country: US (occurrence: US)
  Receive Date: 20161020
  Receipt Date: 20161020
  Transmission Date: 20170207
  Serious: No
  Sender: FDA-Public Use
  Company Number: None

PATIENT
  Sex: Female

DRUGS (1)
  1. HUMIRA [Suspect]
     Active Substance: ADALIMUMAB
     Indication: PSORIASIS
     Route: 058
     Dates: start: 20160407, end: 20160910

REACTIONS (13)
  - Disease recurrence [None]
  - Decreased appetite [None]
  - Anxiety [None]
  - Depression [None]
  - Sleep disorder [None]
  - Gastrointestinal haemorrhage [None]
  - Arthralgia [None]
  - Lacrimation increased [None]
  - Social avoidant behaviour [None]
  - Chest discomfort [None]
  - Musculoskeletal chest pain [None]
  - Skin disorder [None]
  - Alopecia [None]
